FAERS Safety Report 4727480-6 (Version None)
Quarter: 2005Q3

REPORT INFORMATION
  Report Type: 
  Country: None (occurrence: None)
  Receive Date: 20050728
  Receipt Date: 20050714
  Transmission Date: 20060218
  Serious: Yes (Other)
  Sender: FDA-Public Use
  Company Number: BE-ROCHE-410873

PATIENT
  Age: 48 Year
  Sex: Male
  Weight: 110 kg

DRUGS (3)
  1. PEGASYS [Suspect]
     Indication: HEPATITIS C
     Route: 058
     Dates: start: 20040827, end: 20050603
  2. PEGASYS [Suspect]
     Route: 058
     Dates: start: 20050603
  3. COPEGUS [Suspect]
     Indication: HEPATITIS C
     Dosage: FROM 27 AUGUST 2004 TO 13 MAY 2005 1200 MG DAILY, FROM 13 MAY 2005 TO 3 JUNE 2005 800 MG DAILY AND +
     Route: 048
     Dates: start: 20040827

REACTIONS (1)
  - ANAEMIA MACROCYTIC [None]
